FAERS Safety Report 7887656-6 (Version None)
Quarter: 2011Q4

REPORT INFORMATION
  Report Type: 
  Country: None (occurrence: None)
  Receive Date: 20111103
  Receipt Date: 20111026
  Transmission Date: 20120403
  Serious: No
  Sender: FDA-Public Use
  Company Number: US-BIOGENIDEC-2011BI041197

PATIENT
  Sex: Female

DRUGS (2)
  1. TYSABRI [Suspect]
     Route: 042
     Dates: start: 20070213, end: 20100422
  2. TYSABRI [Suspect]
     Indication: MULTIPLE SCLEROSIS
     Route: 042
     Dates: start: 20100930

REACTIONS (5)
  - ARTHROPATHY [None]
  - MULTIPLE SCLEROSIS RELAPSE [None]
  - NEUROPATHY PERIPHERAL [None]
  - HEARING IMPAIRED [None]
  - BACK DISORDER [None]
